FAERS Safety Report 9937814 (Version 1)
Quarter: 2014Q1

REPORT INFORMATION
  Report Type: Spontaneous
  Country: US (occurrence: US)
  Receive Date: 20140303
  Receipt Date: 20140303
  Transmission Date: 20141002
  Serious: No
  Sender: FDA-Public Use
  Company Number: US-BIOGENIDEC-2014BI016199

PATIENT
  Sex: Female

DRUGS (7)
  1. TECFIDERA [Suspect]
     Indication: MULTIPLE SCLEROSIS
     Route: 048
     Dates: start: 201312
  2. ASPIRIN TABLET CHEW [Concomitant]
  3. NEURONTIN [Concomitant]
  4. PLAVIX [Concomitant]
  5. VALIUM [Concomitant]
  6. ZANAFLEX [Concomitant]
  7. TYLENOL PM EXTRA STRENGTH [Concomitant]

REACTIONS (1)
  - Nasopharyngitis [Not Recovered/Not Resolved]
